FAERS Safety Report 25817281 (Version 1)
Quarter: 2025Q3

REPORT INFORMATION
  Report Type: Spontaneous
  Country: CN (occurrence: CN)
  Receive Date: 20250918
  Receipt Date: 20250918
  Transmission Date: 20251021
  Serious: Yes (Other)
  Sender: PFIZER
  Company Number: CN-PFIZER INC-PV202500111962

PATIENT
  Age: 29 Year
  Sex: Female
  Weight: 49.5 kg

DRUGS (3)
  1. METHOTREXATE SODIUM [Suspect]
     Active Substance: METHOTREXATE SODIUM
     Indication: Chemotherapy
     Dosage: 0.01 G, 1X/DAY
     Route: 037
     Dates: start: 20250904
  2. METHOTREXATE SODIUM [Suspect]
     Active Substance: METHOTREXATE SODIUM
     Dosage: 3 G, 1X/DAY
     Route: 041
     Dates: start: 20250904, end: 20250906
  3. CYTARABINE [Suspect]
     Active Substance: CYTARABINE
     Indication: Chemotherapy
     Dosage: 50 MG, 1X/DAY
     Route: 037
     Dates: start: 20250904, end: 20250905

REACTIONS (3)
  - Face oedema [Recovering/Resolving]
  - Chest pain [Recovering/Resolving]
  - Off label use [Unknown]

NARRATIVE: CASE EVENT DATE: 20250904
